FAERS Safety Report 5078263-1 (Version None)
Quarter: 2006Q3

REPORT INFORMATION
  Report Type: 
  Country: None (occurrence: None)
  Receive Date: 20060811
  Receipt Date: 20060802
  Transmission Date: 20061208
  Serious: Yes (Hospitalization)
  Sender: FDA-Public Use
  Company Number: AU-ROCHE-458275

PATIENT
  Age: 20 Year
  Sex: Female
  Weight: 95 kg

DRUGS (1)
  1. XENICAL [Suspect]
     Indication: OBESITY
     Dosage: REPORTED AS THREE DOSE FORM UNSPECIFIED DAILY.
     Route: 048
     Dates: start: 20060215, end: 20060301

REACTIONS (2)
  - ABDOMINAL PAIN [None]
  - ARTHRALGIA [None]
